FAERS Safety Report 4590996-X (Version None)
Quarter: 2005Q1

REPORT INFORMATION
  Report Type: 
  Country: None (occurrence: None)
  Receive Date: 20050218
  Receipt Date: 20050203
  Transmission Date: 20050727
  Serious: Yes (Hospitalization)
  Sender: FDA-Public Use
  Company Number: 2005AP01117

PATIENT
  Age: 10 Year
  Sex: Female

DRUGS (1)
  1. SEROQUEL [Suspect]
     Dosage: 100 MG DAILY PO
     Route: 048
     Dates: start: 20030915, end: 20031220

REACTIONS (2)
  - HYPERGLYCAEMIA [None]
  - URINE KETONE BODY PRESENT [None]
